FAERS Safety Report 8896131 (Version 1)
Quarter: 2012Q4

REPORT INFORMATION
  Report Type: 
  Country: US (occurrence: US)
  Receive Date: 20121108
  Receipt Date: 20121108
  Transmission Date: 20130627
  Serious: No
  Sender: FDA-Public Use
  Company Number: US-ASTRAZENECA-2012SE83021

PATIENT
  Age: 57 Year
  Sex: Male

DRUGS (3)
  1. NEXIUM [Suspect]
     Route: 048
  2. POTASSIUM [Concomitant]
  3. WATER PILL [Concomitant]

REACTIONS (2)
  - Confusional state [Unknown]
  - Speech disorder [Unknown]
